FAERS Safety Report 20950276 (Version 5)
Quarter: 2022Q4

REPORT INFORMATION
  Report Type: Spontaneous
  Country: JP (occurrence: JP)
  Receive Date: 20220613
  Receipt Date: 20221129
  Transmission Date: 20230113
  Serious: Yes (Hospitalization)
  Sender: FDA-Public Use
  Company Number: JP-002147023-NVSJ2022JP089416

PATIENT
  Age: 0 Year
  Sex: Male
  Weight: 6.325 kg

DRUGS (18)
  1. XOLAIR [Suspect]
     Active Substance: OMALIZUMAB
     Indication: Product used for unknown indication
     Dosage: AT A DOSE OF 300 MG, QD
     Route: 064
     Dates: start: 20191217
  2. SYMBICORT [Concomitant]
     Active Substance: BUDESONIDE\FORMOTEROL FUMARATE DIHYDRATE
     Indication: Product used for unknown indication
     Dosage: 2 INHALATIONS/DAY
     Route: 064
  3. SPIRIVA [Concomitant]
     Active Substance: TIOTROPIUM BROMIDE MONOHYDRATE
     Indication: Product used for unknown indication
     Dosage: 2 INHALATIONS/DAY
     Route: 064
  4. LEVOCETIRIZINE [Concomitant]
     Active Substance: LEVOCETIRIZINE
     Indication: Product used for unknown indication
     Route: 064
  5. CALONAL [Concomitant]
     Active Substance: ACETAMINOPHEN
     Indication: Product used for unknown indication
     Dosage: 400MG/ONE TIME AS NEEDED
     Route: 064
  6. MONTELUKAST [Concomitant]
     Active Substance: MONTELUKAST SODIUM
     Indication: Product used for unknown indication
     Route: 064
  7. SODIUM FERROUS CITRATE [Concomitant]
     Active Substance: SODIUM FERROUS CITRATE
     Indication: Product used for unknown indication
     Route: 064
  8. MAGNESIUM OXIDE [Concomitant]
     Active Substance: MAGNESIUM OXIDE
     Indication: Product used for unknown indication
     Route: 064
  9. LEVOTHYROXINE [Concomitant]
     Active Substance: LEVOTHYROXINE
     Indication: Product used for unknown indication
     Route: 064
  10. VONOPRAZAN FUMARATE [Concomitant]
     Active Substance: VONOPRAZAN FUMARATE
     Indication: Product used for unknown indication
     Route: 064
  11. RITODRINE [Concomitant]
     Active Substance: RITODRINE
     Indication: Product used for unknown indication
     Route: 064
     Dates: start: 20220124
  12. RITODRINE [Concomitant]
     Active Substance: RITODRINE
     Route: 064
     Dates: start: 20220221
  13. RITODRINE [Concomitant]
     Active Substance: RITODRINE
     Route: 064
     Dates: start: 20220308
  14. RINDERON [Concomitant]
     Indication: Product used for unknown indication
     Route: 064
     Dates: start: 20220124
  15. RINDERON [Concomitant]
     Dosage: MATERNAL EXPOSURE DURING PREGNANCY: DOSE UNKNOWN
     Route: 064
     Dates: start: 20220125
  16. MAGENTA [Concomitant]
     Indication: Product used for unknown indication
     Route: 064
     Dates: start: 20220125
  17. MAGENTA [Concomitant]
     Route: 064
     Dates: start: 20220221
  18. MAGENTA [Concomitant]
     Route: 064
     Dates: start: 20220308, end: 20220318

REACTIONS (3)
  - Neonatal asphyxia [Recovered/Resolved]
  - Jaundice neonatal [Recovered/Resolved]
  - Foetal exposure during pregnancy [Unknown]

NARRATIVE: CASE EVENT DATE: 20220319
